FAERS Safety Report 5371432-2 (Version None)
Quarter: 2007Q2

REPORT INFORMATION
  Report Type: 
  Country: None (occurrence: None)
  Receive Date: 20070622
  Receipt Date: 20070608
  Transmission Date: 20071010
  Serious: Yes (Hospitalization)
  Sender: FDA-Public Use
  Company Number: 2007S1004530

PATIENT
  Age: 54 Year
  Sex: Female
  Weight: 75.2971 kg

DRUGS (1)
  1. CLOZAPINE [Suspect]
     Dosage: ORAL
     Route: 048

REACTIONS (4)
  - CONDITION AGGRAVATED [None]
  - GRANULOCYTOPENIA [None]
  - MENTAL DISORDER [None]
  - NEUTROPHIL COUNT DECREASED [None]
